FAERS Safety Report 13600737 (Version 6)
Quarter: 2017Q3

REPORT INFORMATION
  Report Type: Report from Study
  Country: US (occurrence: US)
  Receive Date: 20170601
  Receipt Date: 20170712
  Transmission Date: 20171127
  Serious: Yes (Hospitalization, Other)
  Sender: FDA-Public Use
  Company Number: US-AMGEN-USASP2017083054

PATIENT
  Age: 81 Year
  Sex: Male

DRUGS (1)
  1. ENBREL [Suspect]
     Active Substance: ETANERCEPT
     Indication: PSORIASIS
     Dosage: 50 MG, QWK
     Route: 065

REACTIONS (10)
  - Vomiting [Unknown]
  - Asthenia [Unknown]
  - Dysstasia [Unknown]
  - Sepsis [Unknown]
  - Fall [Unknown]
  - Bacterial infection [Unknown]
  - Pruritus [Unknown]
  - Rash generalised [Not Recovered/Not Resolved]
  - Cough [Unknown]
  - Drug dose omission [Unknown]

NARRATIVE: CASE EVENT DATE: 2017
